FAERS Safety Report 5570112-8 (Version None)
Quarter: 2007Q4

REPORT INFORMATION
  Report Type: 
  Country: None (occurrence: None)
  Receive Date: 20071217
  Receipt Date: 20071204
  Transmission Date: 20080405
  Serious: Yes (Hospitalization)
  Sender: FDA-Public Use
  Company Number: 8028474

PATIENT
  Age: 20 Year
  Sex: Male

DRUGS (1)
  1. KEPPRA [Suspect]

REACTIONS (1)
  - PURPURA [None]
